FAERS Safety Report 24650956 (Version 2)
Quarter: 2024Q4

REPORT INFORMATION
  Report Type: Report from Study
  Country: US (occurrence: US)
  Receive Date: 20241122
  Receipt Date: 20241209
  Transmission Date: 20250114
  Serious: Yes (Hospitalization)
  Sender: INSMED
  Company Number: US-INSMED, INC.-2024-03986-US

PATIENT
  Age: 36 Year
  Sex: Female

DRUGS (4)
  1. ARIKAYCE [Suspect]
     Active Substance: AMIKACIN
     Indication: Mycobacterium avium complex infection
     Dosage: 590 MILLIGRAM, QD
     Route: 055
     Dates: start: 20241107, end: 202411
  2. ARIKAYCE [Suspect]
     Active Substance: AMIKACIN
     Indication: Pulmonary tuberculosis
  3. ARIKAYCE [Suspect]
     Active Substance: AMIKACIN
     Indication: Chronic obstructive pulmonary disease
  4. ARIKAYCE [Suspect]
     Active Substance: AMIKACIN
     Indication: Lower respiratory tract infection

REACTIONS (5)
  - Gait disturbance [Not Recovered/Not Resolved]
  - Cough [Not Recovered/Not Resolved]
  - Wheezing [Not Recovered/Not Resolved]
  - Dyspnoea [Not Recovered/Not Resolved]
  - Headache [Unknown]

NARRATIVE: CASE EVENT DATE: 20241101
